FAERS Safety Report 5746066-8 (Version None)
Quarter: 2008Q2

REPORT INFORMATION
  Report Type: 
  Country: None (occurrence: None)
  Receive Date: 20080522
  Receipt Date: 20080515
  Transmission Date: 20081010
  Serious: Yes (Hospitalization)
  Sender: FDA-Public Use
  Company Number: DE-WYE-G01402808

PATIENT
  Sex: Female
  Weight: 60 kg

DRUGS (5)
  1. VENLAFAXINE HCL [Suspect]
     Dosage: 10 CAPSULES (OVERDOSE AMOUNT 750 MG)
     Route: 048
     Dates: start: 20080415, end: 20080415
  2. SERTRALINE [Suspect]
     Dosage: 10 TABLETS (OVERDOSE AMOUNT 1000 MG)
     Route: 048
     Dates: start: 20080415, end: 20080415
  3. AMITRIPTYLINE HYDROCHLORIDE [Suspect]
     Dosage: 20 TABLETS (OVERDOSE AMOUNT 1500 MG)
     Route: 048
     Dates: start: 20080415, end: 20080415
  4. DICLOFENAC [Suspect]
     Dosage: 17 TABLETS (OVERDOSE AMOUNT 850 MG)
     Route: 048
     Dates: start: 20080415, end: 20080415
  5. ACETAMINOPHEN [Suspect]
     Dosage: 10 TABLETS (OVERDOSE AMOUNT 5000 MG)
     Route: 048
     Dates: start: 20080415, end: 20080415

REACTIONS (4)
  - GASTROINTESTINAL SOUNDS ABNORMAL [None]
  - INTENTIONAL OVERDOSE [None]
  - SOPOR [None]
  - SUICIDE ATTEMPT [None]
